FAERS Safety Report 25716181 (Version 1)
Quarter: 2025Q3

REPORT INFORMATION
  Report Type: Spontaneous
  Country: AU (occurrence: AU)
  Receive Date: 20250822
  Receipt Date: 20250822
  Transmission Date: 20251020
  Serious: Yes (Life-Threatening, Hospitalization)
  Sender: SANDOZ
  Company Number: AU-BAYER-2025A089392

PATIENT
  Age: 92 Year
  Sex: Female

DRUGS (7)
  1. DIPRIVAN [Suspect]
     Active Substance: PROPOFOL
     Indication: Product used for unknown indication
     Route: 042
     Dates: start: 20250703
  2. CEFAZOLIN SODIUM [Suspect]
     Active Substance: CEFAZOLIN SODIUM
     Indication: Product used for unknown indication
     Route: 042
     Dates: start: 20250703
  3. FENTANYL [Suspect]
     Active Substance: FENTANYL
     Indication: Product used for unknown indication
     Route: 042
     Dates: start: 20250703
  4. HEPARIN [Suspect]
     Active Substance: HEPARIN SODIUM
     Indication: Product used for unknown indication
     Route: 042
     Dates: start: 20250703
  5. ULTRAVIST [Suspect]
     Active Substance: IOPROMIDE
     Route: 065
  6. ULTRAVIST [Suspect]
     Active Substance: IOPROMIDE
     Route: 065
  7. ULTRAVIST [Suspect]
     Active Substance: IOPROMIDE
     Indication: Aortic valve replacement
     Dosage: 40 ML, QD
     Route: 022
     Dates: start: 20250703, end: 20250703

REACTIONS (2)
  - Flushing [Recovered/Resolved]
  - Hypotension [Recovered/Resolved]

NARRATIVE: CASE EVENT DATE: 20250703
